FAERS Safety Report 13159223 (Version 3)
Quarter: 2017Q2

REPORT INFORMATION
  Report Type: Spontaneous
  Country: US (occurrence: US)
  Receive Date: 20170127
  Receipt Date: 20170508
  Transmission Date: 20170830
  Serious: Yes (Life-Threatening, Hospitalization)
  Sender: FDA-Public Use
  Company Number: US-JNJFOC-20170118470

PATIENT
  Age: 71 Year
  Sex: Male
  Weight: 67.13 kg

DRUGS (12)
  1. XARELTO [Suspect]
     Active Substance: RIVAROXABAN
     Indication: ATRIAL FIBRILLATION
     Dosage: WITH EVENING MEAL
     Route: 048
     Dates: start: 20160210, end: 20170109
  2. XARELTO [Suspect]
     Active Substance: RIVAROXABAN
     Indication: THROMBOSIS PROPHYLAXIS
     Dosage: WITH EVENING MEAL
     Route: 048
     Dates: start: 20160210, end: 20170109
  3. NITROQUICK [Concomitant]
     Active Substance: NITROGLYCERIN
     Indication: ANGINA PECTORIS
     Dosage: 1 TABLET UNDER TONGUE AT ONSET. MAXIMUM THREE DOSES IN 15 MINUTES
     Route: 060
     Dates: start: 20030416
  4. OMEPRAZOLE. [Concomitant]
     Active Substance: OMEPRAZOLE
     Indication: GASTROOESOPHAGEAL REFLUX DISEASE
     Route: 048
     Dates: start: 20060713
  5. LACTOBACILLUS ACIDOPHILUS [Concomitant]
     Active Substance: LACTOBACILLUS ACIDOPHILUS
     Dosage: CHEW 3 TABLETS 3 TO 4 TIMES A DAY
     Route: 048
     Dates: start: 20170117
  6. CARVEDILOL. [Concomitant]
     Active Substance: CARVEDILOL
     Indication: HYPERTENSION
     Route: 048
     Dates: start: 20150918
  7. ASPIRIN. [Concomitant]
     Active Substance: ASPIRIN
     Indication: ANTICOAGULANT THERAPY
     Route: 048
     Dates: start: 20150610
  8. XARELTO [Suspect]
     Active Substance: RIVAROXABAN
     Indication: ANTICOAGULANT THERAPY
     Dosage: WITH EVENING MEAL
     Route: 048
     Dates: start: 20160210, end: 20170109
  9. XARELTO [Suspect]
     Active Substance: RIVAROXABAN
     Indication: CEREBROVASCULAR ACCIDENT PROPHYLAXIS
     Dosage: WITH EVENING MEAL
     Route: 048
     Dates: start: 20160210, end: 20170109
  10. FERROUS SULFATE. [Concomitant]
     Active Substance: FERROUS SULFATE
     Route: 048
     Dates: start: 201702
  11. TAMSULOSIN [Concomitant]
     Active Substance: TAMSULOSIN
     Indication: BENIGN PROSTATIC HYPERPLASIA
     Route: 048
     Dates: start: 201506
  12. VITAMIN D3 [Concomitant]
     Active Substance: CHOLECALCIFEROL
     Indication: VITAMIN SUPPLEMENTATION
     Route: 048
     Dates: start: 20150930

REACTIONS (3)
  - Streptococcal sepsis [Unknown]
  - Drug dose omission [Unknown]
  - Deep vein thrombosis [Recovering/Resolving]

NARRATIVE: CASE EVENT DATE: 20170107
